FAERS Safety Report 13800927 (Version 1)
Quarter: 2017Q3

REPORT INFORMATION
  Report Type: Spontaneous
  Country: KR (occurrence: KR)
  Receive Date: 20170727
  Receipt Date: 20170727
  Transmission Date: 20171127
  Serious: Yes (Other)
  Sender: FDA-Public Use
  Company Number: KR-PFIZER INC-1767133

PATIENT
  Age: 58 Year
  Sex: Male
  Weight: 55 kg

DRUGS (22)
  1. CALCIUM FOLINATE [Suspect]
     Active Substance: LEUCOVORIN CALCIUM
     Indication: NEOPLASM
     Dosage: 400 MG/M2, DAY 1 AND DAY 15 OF EACH 28 DAY CYCLE
     Route: 042
     Dates: start: 20121211, end: 20130507
  2. TARGIN [Concomitant]
     Active Substance: NALOXONE HYDROCHLORIDE\OXYCODONE HYDROCHLORIDE
     Indication: PERIPHERAL SENSORY NEUROPATHY
     Dosage: 1 DF, 2 TABLETS, FREQ: 2 DAY; INTERVAL: 1
     Dates: start: 20120201, end: 20130515
  3. ZANTAC [Concomitant]
     Active Substance: RANITIDINE HYDROCHLORIDE
     Indication: GASTRITIS PROPHYLAXIS
     Dosage: 150 MG, UNK
     Dates: start: 20121211
  4. DEXAMETHASONE. [Concomitant]
     Active Substance: DEXAMETHASONE
     Dosage: 4 MG, UNK
     Dates: start: 20121212
  5. IRINOTECAN HCL [Suspect]
     Active Substance: IRINOTECAN HYDROCHLORIDE
     Indication: NEOPLASM
     Dosage: 150 MG/M2, ON DAY 1 AND DAY 15 OF EACH 28 DAY CYCLE
     Route: 042
     Dates: start: 20121211, end: 20121211
  6. SODIUM BICARBONATE. [Concomitant]
     Active Substance: SODIUM BICARBONATE
     Indication: STOMATITIS
     Dosage: 500 MG, AS NECESSARY
     Dates: start: 20121211
  7. SODIUM BICARBONATE. [Concomitant]
     Active Substance: SODIUM BICARBONATE
     Indication: PROPHYLAXIS
  8. DEXAMETHASONE. [Concomitant]
     Active Substance: DEXAMETHASONE
     Indication: PREMEDICATION
     Dosage: 10 MG, UNK
     Dates: start: 20121211
  9. MAGNESIUM OXIDE. [Concomitant]
     Active Substance: MAGNESIUM OXIDE
     Indication: CONSTIPATION
     Dosage: 500 MG, AS NECESSARY
     Dates: start: 20120220, end: 20130116
  10. FLUOROURACIL. [Suspect]
     Active Substance: FLUOROURACIL
     Dosage: 1920 MG/M2, OVER DAYS 1-3 AND 15-17 OF EACH 28 DAY CYCLE
     Route: 042
     Dates: start: 20121224, end: 20130507
  11. ASPIRIN PROTECT [Concomitant]
     Active Substance: ASPIRIN
     Indication: PULMONARY EMBOLISM
     Dosage: 200 MG, FREQ: 1 DAY; INTERVAL: 1
     Dates: start: 20121201, end: 20130325
  12. LYRICA [Concomitant]
     Active Substance: PREGABALIN
     Indication: PERIPHERAL SENSORY NEUROPATHY
     Dosage: 150 MG, 300 MG, FREQ: 2 DAY; INTERVAL: 1
     Dates: start: 20120201, end: 20130515
  13. VELIPARIB [Suspect]
     Active Substance: VELIPARIB
     Indication: NEOPLASM
     Dosage: 200 MG/M2, BID ON DAYS15-19 IN CYCLE1,SUBSEQUENT CYCLE BID ON DAYS 1-5 + 15-19 OF 28 DAY CYCLE
     Route: 048
     Dates: start: 20121211, end: 20130511
  14. ASPIRIN PROTECT [Concomitant]
     Active Substance: ASPIRIN
     Dosage: 100 MG, FREQ: 1 DAY; INTERVAL: 1
     Dates: start: 20130326, end: 20130515
  15. FLUOROURACIL. [Suspect]
     Active Substance: FLUOROURACIL
     Indication: NEOPLASM
     Dosage: 2400 MG/M2, OVER DAYS 1-3 AND 15-17 OF EACH 28 DAY CYCLE
     Route: 042
     Dates: start: 20121211, end: 20121211
  16. IRINOTECAN HCL [Suspect]
     Active Substance: IRINOTECAN HYDROCHLORIDE
     Dosage: 120 MG/M2, ON DAY 1 AND DAY 15 OF EACH 28 DAY CYCLE
     Route: 042
     Dates: start: 20121224, end: 20130507
  17. ALOXI [Concomitant]
     Active Substance: PALONOSETRON HYDROCHLORIDE
     Indication: PREMEDICATION
     Dosage: 0.25 MG, UNK
     Dates: start: 20121211
  18. ZANIDIP [Concomitant]
     Active Substance: LERCANIDIPINE HYDROCHLORIDE
     Indication: HYPERTENSION
     Dosage: 10 MG, FREQ: 1 DAY; INTERVAL: 1
     Dates: start: 20120201, end: 20130515
  19. SUDAFED/00076302/ [Concomitant]
     Indication: COUGH
     Dosage: 60 MG, AS NECESSARY
     Dates: start: 20121126, end: 20130515
  20. LASIX [Concomitant]
     Active Substance: FUROSEMIDE
     Indication: FACE OEDEMA
     Dosage: 4 MG, FREQ: 1 DAY; INTERVAL: 1
     Dates: start: 20130507, end: 20130515
  21. MEGACE [Concomitant]
     Active Substance: MEGESTROL ACETATE
     Indication: DECREASED APPETITE
     Dosage: 10 ML, 20 ML, FREQ: 2 DAY; INTERVAL: 1
     Route: 048
     Dates: start: 20120220, end: 20130515
  22. ULTRACET [Concomitant]
     Active Substance: ACETAMINOPHEN\TRAMADOL HYDROCHLORIDE
     Indication: BACK PAIN
     Dosage: 725 MG, 1450 MG, FREQ: 2 DAY; INTERVAL: 1
     Dates: start: 20130122

REACTIONS (2)
  - Sepsis [Recovered/Resolved]
  - Fatigue [Recovered/Resolved]

NARRATIVE: CASE EVENT DATE: 20130514
